FAERS Safety Report 15923936 (Version 2)
Quarter: 2019Q1

REPORT INFORMATION
  Report Type: Spontaneous
  Country: US (occurrence: US)
  Receive Date: 20190205
  Receipt Date: 20190219
  Transmission Date: 20190417
  Serious: No
  Sender: FDA-Public Use
  Company Number: US-ALLERGAN-1819894US

PATIENT
  Age: 51 Year
  Sex: Female

DRUGS (9)
  1. BOTOX [Suspect]
     Active Substance: ONABOTULINUMTOXINA
     Indication: MIGRAINE
     Dosage: 180 UNITS, SINGLE
     Route: 030
     Dates: start: 20180404, end: 20180404
  2. ZYRTEC [Concomitant]
     Active Substance: CETIRIZINE HYDROCHLORIDE
     Indication: MULTIPLE ALLERGIES
     Dosage: UNK
     Route: 065
  3. IMITREX [Concomitant]
     Active Substance: SUMATRIPTAN SUCCINATE
     Indication: MIGRAINE
     Dosage: UNK UNK, Q2WEEKS
     Route: 045
  4. CANNABIS SATIVA OIL [Concomitant]
     Active Substance: CANNABIS SATIVA SUBSP. INDICA TOP
     Indication: PAIN
     Dosage: 10MG AT NIGHT
     Route: 060
  5. CANNABIS SATIVA OIL [Concomitant]
     Active Substance: CANNABIS SATIVA SUBSP. INDICA TOP
     Indication: ANXIETY
  6. FLONASE [Concomitant]
     Active Substance: FLUTICASONE PROPIONATE
     Indication: MULTIPLE ALLERGIES
     Dosage: UNK
     Route: 065
  7. IPRATROPIUM [Concomitant]
     Active Substance: IPRATROPIUM
     Dosage: UNK
     Route: 065
  8. CROMOLYN SODIUM. [Concomitant]
     Active Substance: CROMOLYN SODIUM
     Dosage: UNK
     Route: 065
  9. CANNABIS SATIVA OIL [Concomitant]
     Active Substance: CANNABIS SATIVA SUBSP. INDICA TOP
     Indication: SLEEP DISORDER

REACTIONS (7)
  - Malaise [Unknown]
  - Swelling of eyelid [Unknown]
  - Eyelid ptosis [Not Recovered/Not Resolved]
  - Fatigue [Unknown]
  - Nausea [Unknown]
  - Therapeutic response unexpected [Unknown]
  - Muscular weakness [Recovering/Resolving]

NARRATIVE: CASE EVENT DATE: 20180405
